FAERS Safety Report 18279551 (Version 1)
Quarter: 2020Q3

REPORT INFORMATION
  Report Type: Spontaneous
  Country: US (occurrence: US)
  Receive Date: 20200917
  Receipt Date: 20200917
  Transmission Date: 20201103
  Serious: No
  Sender: FDA-Public Use
  Company Number: US-ADAMAS PHARMA, LLC-2020ADA01602

PATIENT
  Sex: Male

DRUGS (3)
  1. GOCOVRI [Suspect]
     Active Substance: AMANTADINE
     Dosage: HIGHER DOSE THAN NEEDED
  2. GOCOVRI [Suspect]
     Active Substance: AMANTADINE
     Dosage: DECREASED DOSE
  3. GOCOVRI [Suspect]
     Active Substance: AMANTADINE
     Indication: PARKINSON^S DISEASE
     Dosage: UNK

REACTIONS (2)
  - Dyskinesia [Recovered/Resolved]
  - Overdose [Recovered/Resolved]
